FAERS Safety Report 20538454 (Version 1)
Quarter: 2022Q1

REPORT INFORMATION
  Report Type: Spontaneous
  Country: MX (occurrence: MX)
  Receive Date: 20220302
  Receipt Date: 20220302
  Transmission Date: 20220423
  Serious: Yes (Other)
  Sender: FDA-Public Use
  Company Number: MX-BAYER-2021-203239

PATIENT
  Age: 87 Year
  Sex: Female
  Weight: 85 kg

DRUGS (1)
  1. XARELTO [Suspect]
     Active Substance: RIVAROXABAN
     Indication: Product used for unknown indication
     Dosage: 15 MG, QOD
     Route: 048
     Dates: start: 20210807

REACTIONS (3)
  - Gastrointestinal haemorrhage [Unknown]
  - Colon dysplasia [Unknown]
  - Off label use [Unknown]

NARRATIVE: CASE EVENT DATE: 20210807
